FAERS Safety Report 9014424 (Version 1)
Quarter: 2013Q1

REPORT INFORMATION
  Report Type: Spontaneous
  Country: GB (occurrence: GB)
  Receive Date: 20130115
  Receipt Date: 20130115
  Transmission Date: 20140127
  Serious: Yes (Other)
  Sender: FDA-Public Use
  Company Number: GB-UCBSA-074643

PATIENT
  Age: 8 Year
  Sex: Male
  Weight: 22 kg

DRUGS (1)
  1. EQUASYM XL [Suspect]
     Indication: ATTENTION DEFICIT/HYPERACTIVITY DISORDER
     Route: 048
     Dates: start: 20120322, end: 20120731

REACTIONS (4)
  - Eye movement disorder [Recovered/Resolved]
  - Grimacing [Recovered/Resolved]
  - Dyskinesia [Recovered/Resolved]
  - Tic [Recovered/Resolved]
